FAERS Safety Report 6589030-1 (Version None)
Quarter: 2010Q1

REPORT INFORMATION
  Report Type: 
  Country: None (occurrence: None)
  Receive Date: 20100218
  Receipt Date: 20100215
  Transmission Date: 20100710
  Serious: Yes (Life-Threatening, Hospitalization)
  Sender: FDA-Public Use
  Company Number: DE-MERCK-1002DEU00078

PATIENT
  Age: 65 Year
  Sex: Female

DRUGS (29)
  1. EMEND [Suspect]
     Indication: PROPHYLAXIS OF NAUSEA AND VOMITING
     Route: 048
     Dates: start: 20090415, end: 20090415
  2. EMEND [Suspect]
     Route: 048
     Dates: start: 20090416, end: 20090417
  3. ALLOPURINOL [Suspect]
     Indication: PROPHYLAXIS
     Route: 048
     Dates: start: 20090213
  4. WOBENZYM [Suspect]
     Indication: BRONCHIAL CARCINOMA
     Route: 048
     Dates: start: 20090401
  5. TANTUM VERDE [Suspect]
     Indication: ORAL PAIN
     Route: 061
     Dates: start: 20090407, end: 20090421
  6. TANTUM VERDE [Suspect]
     Route: 061
     Dates: start: 20090424
  7. ISCADOR [Suspect]
     Indication: BRONCHIAL CARCINOMA
     Route: 058
     Dates: start: 20090409
  8. KEVATRIL [Suspect]
     Indication: PROPHYLAXIS OF NAUSEA AND VOMITING
     Route: 042
     Dates: start: 20090415, end: 20090415
  9. DEXAMETHASONE [Suspect]
     Indication: BRONCHIAL CARCINOMA
     Route: 042
     Dates: start: 20090415, end: 20090415
  10. CISPLATIN [Suspect]
     Indication: BRONCHIAL CARCINOMA
     Route: 042
     Dates: start: 20090415, end: 20090415
  11. VERGENTAN [Suspect]
     Indication: PROPHYLAXIS OF NAUSEA AND VOMITING
     Route: 048
     Dates: start: 20090415, end: 20090415
  12. VERGENTAN [Suspect]
     Route: 048
     Dates: start: 20090420, end: 20090421
  13. VERGENTAN [Suspect]
     Route: 048
     Dates: start: 20090425
  14. ETOPOSIDE [Suspect]
     Indication: BRONCHIAL CARCINOMA
     Route: 042
     Dates: start: 20090415, end: 20090417
  15. RADIOGRAPHIC CONTRAST MEDIUM (UNSPECIFIED) [Suspect]
     Route: 042
     Dates: start: 20090420, end: 20090420
  16. KEPPRA [Concomitant]
     Indication: CONVULSION
     Route: 042
     Dates: start: 20090421, end: 20090421
  17. TAVOR (OXYBUTYNIN CHLORIDE) [Concomitant]
     Indication: CONVULSION
     Route: 042
     Dates: start: 20090421, end: 20090421
  18. ZOLPIDEM TARTRATE [Concomitant]
     Indication: SLEEP DISORDER
     Route: 048
     Dates: start: 20090427, end: 20090427
  19. ORFIRIL [Concomitant]
     Indication: EPILEPSY
     Route: 048
     Dates: start: 20090205, end: 20090416
  20. ORFIRIL [Concomitant]
     Route: 048
     Dates: start: 20090422
  21. DIOVAN [Concomitant]
     Indication: HYPERTENSION
     Route: 048
     Dates: start: 20090219
  22. CARMEN [Concomitant]
     Indication: HYPERTENSION
     Route: 048
     Dates: start: 20090218
  23. METOPROLOL [Concomitant]
     Indication: HYPERTENSION
     Route: 048
     Dates: start: 20080101
  24. DEXAMETHASONE [Concomitant]
     Indication: PROPHYLAXIS
     Route: 048
     Dates: start: 20090205
  25. AMPHOTERICIN B [Concomitant]
     Indication: PROPHYLAXIS
     Route: 061
     Dates: start: 20090213
  26. L-THYROXIN [Concomitant]
     Indication: HYPOTHYROIDISM
     Route: 048
     Dates: start: 20080101
  27. ASCORBIC ACID [Concomitant]
     Route: 048
     Dates: start: 20080101
  28. [COMPOSITION UNSPECIFIED] [Concomitant]
     Indication: PROPHYLAXIS
     Route: 061
     Dates: start: 20090213
  29. SELENIUM (UNSPECIFIED) [Concomitant]
     Indication: BRONCHIAL CARCINOMA
     Route: 048
     Dates: start: 20090401

REACTIONS (3)
  - GENERAL SYMPTOM [None]
  - STEVENS-JOHNSON SYNDROME [None]
  - TOXIC EPIDERMAL NECROLYSIS [None]
